FAERS Safety Report 8608692-8 (Version None)
Quarter: 2012Q3

REPORT INFORMATION
  Report Type: 
  Country: None (occurrence: None)
  Receive Date: 20120821
  Receipt Date: 20120814
  Transmission Date: 20120928
  Serious: No
  Sender: FDA-Public Use
  Company Number: US-B.I. PHARMACEUTICALS,INC./RIDGEFIELD-2011-BP-06937BP

PATIENT
  Sex: Male
  Weight: 79.38 kg

DRUGS (16)
  1. NEURONTIN [Suspect]
     Route: 048
     Dates: start: 20101101
  2. LYRICA [Concomitant]
     Indication: NEURALGIA
     Dosage: 50 MG
     Route: 048
     Dates: start: 20100101
  3. CORTIS [Concomitant]
  4. DIGOXIN [Concomitant]
     Dosage: 125 MCG
     Route: 048
     Dates: start: 20020101
  5. DILTIAZEM [Concomitant]
     Dosage: 240 MG
     Route: 048
     Dates: start: 20070101
  6. ULTRAM [Concomitant]
     Indication: ARTHRALGIA
     Dosage: 200 MG
     Route: 048
     Dates: start: 20090101
  7. NASONEX [Concomitant]
  8. LIPITOR [Concomitant]
     Indication: BLOOD CHOLESTEROL INCREASED
     Dosage: 5 MG
     Route: 048
     Dates: start: 20090101
  9. LEVOTHYROXINE SODIUM [Concomitant]
     Indication: HYPOTHYROIDISM
     Dosage: 0.15 MG
     Route: 048
     Dates: start: 20020101
  10. NIASPAN [Concomitant]
  11. KLOR-CON [Concomitant]
     Route: 048
     Dates: start: 20020101
  12. VYTORIN [Concomitant]
  13. LASIX [Concomitant]
     Dosage: 20 MG
     Route: 048
     Dates: start: 20020101
  14. MOBIC [Concomitant]
     Indication: ARTHRALGIA
     Route: 048
     Dates: start: 20110701, end: 20120716
  15. PRADAXA [Suspect]
     Indication: ATRIAL FIBRILLATION
     Dosage: 300 MG
     Route: 048
     Dates: start: 20101101
  16. AMBIEN [Concomitant]
     Indication: INSOMNIA
     Dosage: 10 MG
     Route: 048
     Dates: start: 20020101

REACTIONS (2)
  - CONTUSION [None]
  - WEIGHT INCREASED [None]
